FAERS Safety Report 8796044 (Version 1)
Quarter: 2012Q4

REPORT INFORMATION
  Report Type: 
  Country: US (occurrence: US)
  Receive Date: 20120919
  Receipt Date: 20120919
  Transmission Date: 20130627
  Serious: Yes (Hospitalization, Other)
  Sender: FDA-Public Use
  Company Number: US-CELGENEUS-163-21880-12062401

PATIENT

DRUGS (3)
  1. REVLIMID [Suspect]
     Indication: MULTIPLE MYELOMA
     Dosage: 25 Milligram
     Route: 048
  2. DEXAMETHASONE [Suspect]
     Indication: MULTIPLE MYELOMA
     Dosage: 40/20mg
     Route: 065
  3. CARFILZOMIB [Suspect]
     Indication: MULTIPLE MYELOMA
     Dosage: 20, 27, or 36mg/m2
     Route: 065

REACTIONS (24)
  - Renal disorder [Unknown]
  - Phlebitis [Unknown]
  - Hyperglycaemia [Unknown]
  - Hypophosphataemia [Unknown]
  - Anaemia [Unknown]
  - Thrombocytopenia [Unknown]
  - Neutropenia [Unknown]
  - Oedema [Unknown]
  - Liver function test abnormal [Unknown]
  - Fatigue [Unknown]
  - Rash [Unknown]
  - Pneumonia [Unknown]
  - Deep vein thrombosis [Unknown]
  - Pulmonary embolism [Unknown]
  - Mood altered [Unknown]
  - Dyspnoea [Unknown]
  - Neuropathy peripheral [Unknown]
  - Muscle spasms [Unknown]
  - Diarrhoea [Unknown]
  - Nausea [Unknown]
  - Constipation [Unknown]
  - Lymphopenia [Unknown]
  - Leukopenia [Unknown]
  - Upper respiratory tract infection [Unknown]
